FAERS Safety Report 14934461 (Version 1)
Quarter: 2018Q2

REPORT INFORMATION
  Report Type: Spontaneous
  Country: US (occurrence: US)
  Receive Date: 20180524
  Receipt Date: 20180524
  Transmission Date: 20180711
  Serious: Yes (Other)
  Sender: FDA-Public Use
  Company Number: US-BOIRON INC.-2018BOR00009

PATIENT
  Sex: Male

DRUGS (1)
  1. CAMILIA (HOMEOPATHIC) [Suspect]
     Active Substance: HOMEOPATHICS

REACTIONS (1)
  - Seizure [Unknown]
